FAERS Safety Report 7234839-4 (Version None)
Quarter: 2011Q1

REPORT INFORMATION
  Report Type: 
  Country: None (occurrence: None)
  Receive Date: 20110114
  Receipt Date: 20110114
  Transmission Date: 20110831
  Serious: Yes (Hospitalization)
  Sender: FDA-Public Use
  Company Number: None

PATIENT
  Age: 76 Year
  Sex: Male

DRUGS (2)
  1. ASPIRIN [Suspect]
     Dosage: 81 MG QDAY PO
     Route: 048
     Dates: start: 20100901, end: 20101103
  2. PLAVIX [Suspect]
     Dosage: 75 MG QDAY PO
     Route: 048
     Dates: start: 20100901, end: 20101103

REACTIONS (6)
  - ANAEMIA [None]
  - HYPOTENSION [None]
  - FATIGUE [None]
  - DIZZINESS [None]
  - GASTROINTESTINAL HAEMORRHAGE [None]
  - FAECES DISCOLOURED [None]
